FAERS Safety Report 8928919 (Version 2)
Quarter: 2012Q4

REPORT INFORMATION
  Report Type: Report from Study
  Country: AT (occurrence: AT)
  Receive Date: 20121128
  Receipt Date: 20121129
  Transmission Date: 20130627
  Serious: Yes (Hospitalization)
  Sender: FDA-Public Use
  Company Number: AT-AMGEN-AUTCT2012075503

PATIENT
  Age: 65 Year
  Sex: Female

DRUGS (1)
  1. DENOSUMAB [Suspect]
     Indication: BREAST CANCER
     Dosage: 60 mg, UNK
     Route: 042
     Dates: start: 20090721

REACTIONS (1)
  - Anal squamous cell carcinoma [Unknown]
